FAERS Safety Report 13169967 (Version 2)
Quarter: 2018Q1

REPORT INFORMATION
  Report Type: Spontaneous
  Country: US (occurrence: US)
  Receive Date: 20170131
  Receipt Date: 20180126
  Transmission Date: 20180508
  Serious: No
  Sender: FDA-Public Use
  Company Number: US-ABBVIE-16K-163-1556334-00

PATIENT
  Sex: Male

DRUGS (1)
  1. HUMIRA [Suspect]
     Active Substance: ADALIMUMAB
     Indication: RHEUMATOID ARTHRITIS
     Route: 058

REACTIONS (12)
  - Joint destruction [Unknown]
  - Mobility decreased [Unknown]
  - Emotional distress [Unknown]
  - Upper respiratory tract infection [Unknown]
  - Pain [Unknown]
  - Asthenia [Unknown]
  - Feeling abnormal [Unknown]
  - Musculoskeletal stiffness [Unknown]
  - Impaired work ability [Unknown]
  - General physical health deterioration [Unknown]
  - Emotional disorder [Unknown]
  - Rheumatoid arthritis [Unknown]
